FAERS Safety Report 6183719-4 (Version None)
Quarter: 2009Q2

REPORT INFORMATION
  Report Type: 
  Country: None (occurrence: None)
  Receive Date: 20090508
  Receipt Date: 20090430
  Transmission Date: 20091009
  Serious: Yes (Other)
  Sender: FDA-Public Use
  Company Number: GB-ASTRAZENECA-2009AC01306

PATIENT
  Age: 81 Year
  Sex: Female

DRUGS (1)
  1. ROPIVACAINE [Suspect]
     Indication: NERVE BLOCK

REACTIONS (1)
  - FALL [None]
